FAERS Safety Report 6038303-X (Version None)
Quarter: 2009Q1

REPORT INFORMATION
  Report Type: 
  Country: None (occurrence: None)
  Receive Date: 20090115
  Receipt Date: 20090109
  Transmission Date: 20090719
  Serious: Yes (Hospitalization)
  Sender: FDA-Public Use
  Company Number: BR-BAYER-200810461LA

PATIENT
  Age: 23 Year
  Sex: Female

DRUGS (4)
  1. YAZ [Suspect]
     Indication: ORAL CONTRACEPTION
     Route: 048
     Dates: start: 20071001, end: 20071223
  2. OMEPRAZOLE [Concomitant]
     Indication: ABDOMINAL PAIN UPPER
     Route: 048
     Dates: start: 20071101
  3. DACTIL AB [Concomitant]
     Indication: ABORTION THREATENED
     Route: 065
     Dates: start: 20080201
  4. UNKNOWN DRUG [Concomitant]
     Indication: ABORTION THREATENED
     Route: 065
     Dates: start: 20080201

REACTIONS (6)
  - ABDOMINAL PAIN [None]
  - BACK PAIN [None]
  - DIARRHOEA [None]
  - PREGNANCY ON ORAL CONTRACEPTIVE [None]
  - PREMENSTRUAL SYNDROME [None]
  - UTERINE CONTRACTIONS DURING PREGNANCY [None]
